FAERS Safety Report 16332172 (Version 1)
Quarter: 2019Q2

REPORT INFORMATION
  Report Type: Report from Study
  Country: US (occurrence: US)
  Receive Date: 20190520
  Receipt Date: 20190520
  Transmission Date: 20190711
  Serious: Yes (Hospitalization, Other)
  Sender: FDA-Public Use
  Company Number: US-ROCHE-2315778

PATIENT

DRUGS (1)
  1. BEVACIZUMAB. [Suspect]
     Active Substance: BEVACIZUMAB
     Indication: OVARIAN CANCER
     Route: 065

REACTIONS (4)
  - Acute kidney injury [Unknown]
  - Myositis [Unknown]
  - Blood creatine phosphokinase increased [Recovered/Resolved]
  - Rash maculo-papular [Unknown]

NARRATIVE: CASE EVENT DATE: 20141118
